FAERS Safety Report 14090146 (Version 2)
Quarter: 2018Q4

REPORT INFORMATION
  Report Type: Spontaneous
  Country: JP (occurrence: JP)
  Receive Date: 20171013
  Receipt Date: 20181011
  Transmission Date: 20190204
  Serious: Yes (Other)
  Sender: FDA-Public Use
  Company Number: JP-009507513-1710JPN005829

PATIENT
  Age: 41 Year
  Sex: Male
  Weight: 80 kg

DRUGS (2)
  1. SOVALDI [Suspect]
     Active Substance: SOFOSBUVIR
     Indication: CHRONIC HEPATITIS C
     Dosage: 400 MG, QD
     Route: 048
     Dates: start: 20160902, end: 20161125
  2. REBETOL [Suspect]
     Active Substance: RIBAVIRIN
     Indication: CHRONIC HEPATITIS C
     Dosage: 1000 MG DAILY
     Route: 048
     Dates: start: 20160902, end: 20161125

REACTIONS (2)
  - Hepatitis C [Not Recovered/Not Resolved]
  - Virologic failure [Unknown]

NARRATIVE: CASE EVENT DATE: 20170106
